FAERS Safety Report 24346537 (Version 2)
Quarter: 2024Q4

REPORT INFORMATION
  Report Type: Spontaneous
  Country: CA (occurrence: CA)
  Receive Date: 20240921
  Receipt Date: 20241115
  Transmission Date: 20250115
  Serious: Yes (Hospitalization, Other)
  Sender: ROCHE
  Company Number: CA-ROCHE-10000081343

PATIENT
  Age: 78 Year
  Sex: Female
  Weight: 58 kg

DRUGS (18)
  1. ACTEMRA [Suspect]
     Active Substance: TOCILIZUMAB
     Indication: Rheumatoid arthritis
     Route: 042
     Dates: start: 20170816, end: 20241111
  2. ACTEMRA [Suspect]
     Active Substance: TOCILIZUMAB
     Route: 042
  3. PREDNISONE [Concomitant]
     Active Substance: PREDNISONE
     Route: 048
  4. ACTONEL [Concomitant]
     Active Substance: RISEDRONATE SODIUM
     Route: 048
  5. OMEGA 3 [Concomitant]
     Active Substance: CAPSAICIN
     Route: 048
  6. BIOTIN [Concomitant]
     Active Substance: BIOTIN
     Route: 048
  7. TRELEGY ELLIPTA [Concomitant]
     Active Substance: FLUTICASONE FUROATE\UMECLIDINIUM BROMIDE\VILANTEROL TRIFENATATE
  8. FLUTICASONE [Concomitant]
     Active Substance: FLUTICASONE
  9. EZETIMIBE [Concomitant]
     Active Substance: EZETIMIBE
  10. DEXLANSOPRAZOLE [Concomitant]
     Active Substance: DEXLANSOPRAZOLE
  11. VITAMIN D3 [Concomitant]
     Active Substance: CHOLECALCIFEROL
  12. AMITRIPTYLINE HYDROCHLORIDE [Concomitant]
     Active Substance: AMITRIPTYLINE HYDROCHLORIDE
  13. METOPROLOL TARTRATE [Concomitant]
     Active Substance: METOPROLOL TARTRATE
  14. FUROSEMIDE [Concomitant]
     Active Substance: FUROSEMIDE
  15. LEVOTHYROXINE SODIUM [Concomitant]
  16. XARELTO [Concomitant]
     Active Substance: RIVAROXABAN
  17. TEARS NATURALE FREE [Concomitant]
     Active Substance: DEXTRAN 70\HYPROMELLOSE 2910 (4000 MPA.S)
  18. TYLENOL WITH CODEINE [Concomitant]
     Active Substance: ACETAMINOPHEN\CODEINE PHOSPHATE

REACTIONS (4)
  - Upper limb fracture [Recovered/Resolved]
  - Thoracic vertebral fracture [Recovered/Resolved]
  - Respiratory arrest [Recovered/Resolved]
  - Acute kidney injury [Recovered/Resolved]

NARRATIVE: CASE EVENT DATE: 20240803
